FAERS Safety Report 5427305-X (Version None)
Quarter: 2007Q3

REPORT INFORMATION
  Report Type: 
  Country: None (occurrence: None)
  Receive Date: 20070823
  Receipt Date: 20070808
  Transmission Date: 20080115
  Serious: Yes (Hospitalization)
  Sender: FDA-Public Use
  Company Number: 6034952

PATIENT
  Age: 18 Year
  Sex: Female

DRUGS (2)
  1. CIPROFLOXACIN [Suspect]
     Indication: DRUG USE FOR UNKNOWN INDICATION
     Dosage: 2 GM (1 GM, 2 IN 1 D)
  2. RIFAMPICIN [Suspect]
     Indication: DRUG USE FOR UNKNOWN INDICATION
     Dosage: 600 MG (300 MG, 2 IN 1 D)

REACTIONS (5)
  - ACTIVATED PARTIAL THROMBOPLASTIN TIME PROLONGED [None]
  - COAGULOPATHY [None]
  - INTERNATIONAL NORMALISED RATIO INCREASED [None]
  - NEPHRITIS INTERSTITIAL [None]
  - VOMITING [None]
